FAERS Safety Report 8779976 (Version 1)
Quarter: 2012Q4

REPORT INFORMATION
  Report Type: Report from Study
  Country: US (occurrence: US)
  Receive Date: 20120912
  Receipt Date: 20120912
  Transmission Date: 20130627
  Serious: No
  Sender: FDA-Public Use
  Company Number: US-VERTEX PHARMACEUTICAL INC.-AE-2012-005654

PATIENT

DRUGS (13)
  1. INCIVEK [Suspect]
     Indication: HEPATITIS C
     Route: 048
     Dates: start: 20120315
  2. PEGASYS [Concomitant]
     Indication: HEPATITIS C
     Dates: start: 20120315
  3. RIBAVIRIN [Concomitant]
     Indication: HEPATITIS C
     Route: 048
     Dates: start: 20120315
  4. PREPARATION H [Concomitant]
  5. PLAVIX [Concomitant]
  6. METOPROL TAR [Concomitant]
  7. LOSARTAN POT [Concomitant]
  8. LEVOTHYROXIN [Concomitant]
  9. GLIMEPIRIDE [Concomitant]
  10. GABAPENTIN [Concomitant]
  11. METFORMIN [Concomitant]
  12. ASPIRIN EC LOW [Concomitant]
  13. MULTIVITAMIN [Concomitant]

REACTIONS (13)
  - Insomnia [Unknown]
  - Headache [Unknown]
  - Abdominal pain [Unknown]
  - Dry skin [Unknown]
  - Back pain [Unknown]
  - Dry mouth [Unknown]
  - Pain [Unknown]
  - Fatigue [Unknown]
  - Rash pruritic [Unknown]
  - Haemorrhoids [Not Recovered/Not Resolved]
  - Anal pruritus [Unknown]
  - Anorectal discomfort [Unknown]
  - Nausea [Unknown]
